FAERS Safety Report 8401664-8 (Version None)
Quarter: 2012Q2

REPORT INFORMATION
  Report Type: 
  Country: None (occurrence: None)
  Receive Date: 20120601
  Receipt Date: 20120522
  Transmission Date: 20120825
  Serious: Yes (Hospitalization)
  Sender: FDA-Public Use
  Company Number: CA-JNJFOC-20120516655

PATIENT
  Sex: Female
  Weight: 70 kg

DRUGS (17)
  1. GOLIMUMAB [Suspect]
     Indication: RHEUMATOID ARTHRITIS
     Route: 058
     Dates: start: 20120122
  2. DICETEL [Concomitant]
     Route: 048
     Dates: start: 20090401
  3. MICARDIS [Concomitant]
     Route: 048
     Dates: start: 20100101
  4. METHOTREXATE [Concomitant]
     Route: 058
     Dates: start: 20070429
  5. CELEBREX [Concomitant]
     Route: 048
     Dates: start: 20080331
  6. DOMPERIDONE [Concomitant]
     Route: 048
     Dates: start: 20100818
  7. CYCLOMEN [Concomitant]
     Route: 048
     Dates: start: 20110526
  8. FOSAMAX [Concomitant]
     Route: 048
  9. GOLIMUMAB [Suspect]
     Route: 058
     Dates: start: 20070226
  10. FOLIC ACID [Concomitant]
     Route: 048
     Dates: start: 20050101
  11. TYLENOL W/ CODEINE NO. 3 [Concomitant]
     Route: 048
     Dates: start: 20110915
  12. MESALAMINE [Concomitant]
     Route: 048
  13. PERCOCET [Concomitant]
     Route: 048
     Dates: start: 20090910
  14. CYCLOBENZAPRINE [Concomitant]
     Route: 048
     Dates: start: 20100701
  15. SYMBICORT [Concomitant]
     Route: 055
  16. NEXIUM [Concomitant]
     Route: 048
     Dates: start: 20100816
  17. DOCUSATE [Concomitant]
     Route: 048
     Dates: start: 20110915

REACTIONS (1)
  - ENDOMETRIOSIS [None]
